FAERS Safety Report 5951578-8 (Version None)
Quarter: 2008Q4

REPORT INFORMATION
  Report Type: 
  Country: None (occurrence: None)
  Receive Date: 20081113
  Receipt Date: 20081104
  Transmission Date: 20090506
  Serious: Yes (Other)
  Sender: FDA-Public Use
  Company Number: PHHY2008GB26023

PATIENT
  Sex: Male

DRUGS (2)
  1. CLOZARIL [Suspect]
     Indication: SCHIZOPHRENIA
     Dosage: 300 MG/DAY
     Dates: start: 20080924
  2. CLOZARIL [Suspect]
     Dosage: 325 MG/DAY

REACTIONS (2)
  - FALL [None]
  - HAEMOGLOBIN DECREASED [None]
